FAERS Safety Report 17150610 (Version 1)
Quarter: 2019Q4

REPORT INFORMATION
  Report Type: Spontaneous
  Country: US (occurrence: US)
  Receive Date: 20191121
  Receipt Date: 20191121
  Transmission Date: 20200122
  Serious: No
  Sender: FDA-Public Use
  Company Number: None

PATIENT
  Age: 29 Year
  Sex: Female

DRUGS (1)
  1. ZARXIO [Suspect]
     Active Substance: FILGRASTIM-SNDZ
     Indication: NEUTROPENIA
     Dosage: ?          OTHER STRENGTH:300MCG/0.5ML;?
     Route: 058
     Dates: start: 201909

REACTIONS (1)
  - Laboratory test abnormal [None]

NARRATIVE: CASE EVENT DATE: 20191121
